FAERS Safety Report 15023570 (Version 1)
Quarter: 2018Q2

REPORT INFORMATION
  Report Type: Spontaneous
  Country: US (occurrence: US)
  Receive Date: 20180602
  Receipt Date: 20180602
  Transmission Date: 20180711
  Serious: No
  Sender: FDA-Public Use
  Company Number: None

PATIENT
  Age: 33 Month
  Sex: Female
  Weight: 13.5 kg

DRUGS (3)
  1. VITAMIN WITH IRON [Concomitant]
  2. AZITHROMYCIN ANHYDROUS. [Suspect]
     Active Substance: AZITHROMYCIN ANHYDROUS
     Indication: PNEUMONIA
     Route: 048
     Dates: start: 20180528, end: 20180601
  3. FLINTSTONE [Concomitant]

REACTIONS (4)
  - Diarrhoea [None]
  - Stomatitis [None]
  - Pain in extremity [None]
  - Gingival bleeding [None]

NARRATIVE: CASE EVENT DATE: 20180528
